FAERS Safety Report 8461668-6 (Version None)
Quarter: 2012Q2

REPORT INFORMATION
  Report Type: 
  Country: None (occurrence: None)
  Receive Date: 20120625
  Receipt Date: 20120618
  Transmission Date: 20120825
  Serious: Yes (Other)
  Sender: FDA-Public Use
  Company Number: US-JNJFOC-20120609003

PATIENT
  Sex: Male
  Weight: 97.52 kg

DRUGS (3)
  1. STELARA [Suspect]
     Route: 058
     Dates: start: 20090101
  2. DEPAKOTE [Concomitant]
  3. STELARA [Suspect]
     Indication: PSORIASIS
     Route: 058
     Dates: start: 20120101

REACTIONS (4)
  - LYMPHADENOPATHY [None]
  - DEAFNESS UNILATERAL [None]
  - SWELLING FACE [None]
  - OROPHARYNGEAL PAIN [None]
